FAERS Safety Report 14675120 (Version 1)
Quarter: 2018Q1

REPORT INFORMATION
  Report Type: Spontaneous
  Country: CN (occurrence: CN)
  Receive Date: 20180323
  Receipt Date: 20180323
  Transmission Date: 20180509
  Serious: Yes (Other)
  Sender: FDA-Public Use
  Company Number: CN-PFIZER INC-2018114153

PATIENT
  Age: 70 Year
  Sex: Male

DRUGS (1)
  1. PHARMORUBICIN [Suspect]
     Active Substance: EPIRUBICIN
     Indication: URETERAL NEOPLASM
     Dosage: 50 MG, WEEKLY (50MG PHARMORUBICIN PLUS 50ML PERFUSION WATER, ONCE WEEKLY)
     Route: 043
     Dates: end: 20180315

REACTIONS (2)
  - Haematuria [Unknown]
  - Inflammation [Unknown]

NARRATIVE: CASE EVENT DATE: 20180315
